FAERS Safety Report 17214139 (Version 1)
Quarter: 2019Q4

REPORT INFORMATION
  Report Type: Spontaneous
  Country: SI (occurrence: SI)
  Receive Date: 20191230
  Receipt Date: 20191230
  Transmission Date: 20200122
  Serious: Yes (Death, Other)
  Sender: FDA-Public Use
  Company Number: SI-PFIZER INC-2019551610

PATIENT
  Age: 79 Year
  Sex: Male

DRUGS (15)
  1. SULFAMETHOXAZOLE/TRIMETHOPRIM [Suspect]
     Active Substance: SULFAMETHOXAZOLE\TRIMETHOPRIM
     Indication: SEPSIS
     Dosage: UNK (WAS ADDED 2 DAYS LATER)
  2. DEXAMETHASONE. [Concomitant]
     Active Substance: DEXAMETHASONE
     Indication: HEMIPARESIS
     Dosage: 12 MG, DAILY
  3. DEXAMETHASONE. [Concomitant]
     Active Substance: DEXAMETHASONE
     Indication: MALIGNANT GLIOMA
  4. PIPERACILLIN AND TAZOBACTAM [Suspect]
     Active Substance: PIPERACILLIN SODIUM\TAZOBACTAM SODIUM
     Indication: EOSINOPENIA
     Dosage: UNK
  5. IVERMECTIN. [Suspect]
     Active Substance: IVERMECTIN
     Indication: STRONGYLOIDIASIS
     Dosage: UNK (ENTERAL)
  6. PREDNISONE. [Concomitant]
     Active Substance: PREDNISONE
     Indication: DYSARTHRIA
  7. PREDNISONE. [Concomitant]
     Active Substance: PREDNISONE
     Indication: MALIGNANT GLIOMA
  8. PREDNISONE. [Concomitant]
     Active Substance: PREDNISONE
     Indication: HEMIPARESIS
     Dosage: UNK (CUMULATIVE DOSAGE OF PREDNISONE-EQUIVALENT 1,800 MG) (FIVE WEEKS AFTER THE INITIATION OF CST)
  9. ALBENDAZOLE. [Suspect]
     Active Substance: ALBENDAZOLE
     Indication: STRONGYLOIDIASIS
     Dosage: UNK (ENTERAL)
  10. VORICONAZOLE. [Suspect]
     Active Substance: VORICONAZOLE
     Indication: ASPERGILLUS INFECTION
     Dosage: UNK
  11. PIPERACILLIN AND TAZOBACTAM [Suspect]
     Active Substance: PIPERACILLIN SODIUM\TAZOBACTAM SODIUM
     Indication: SEPTIC SHOCK
  12. IVERMECTIN. [Suspect]
     Active Substance: IVERMECTIN
     Dosage: UNK (PARENTERAL)
  13. DEXAMETHASONE. [Concomitant]
     Active Substance: DEXAMETHASONE
     Indication: DYSARTHRIA
     Dosage: IMMEDIATELY TAPERED
  14. PIPERACILLIN AND TAZOBACTAM [Suspect]
     Active Substance: PIPERACILLIN SODIUM\TAZOBACTAM SODIUM
     Indication: SEPSIS
  15. SULFAMETHOXAZOLE/TRIMETHOPRIM [Suspect]
     Active Substance: SULFAMETHOXAZOLE\TRIMETHOPRIM
     Indication: SEPTIC SHOCK

REACTIONS (3)
  - Bronchopulmonary aspergillosis [Fatal]
  - Drug ineffective [Fatal]
  - Septic shock [Fatal]
